FAERS Safety Report 17057158 (Version 1)
Quarter: 2019Q4

REPORT INFORMATION
  Report Type: Report from Study
  Country: NL (occurrence: NL)
  Receive Date: 20191121
  Receipt Date: 20191121
  Transmission Date: 20200122
  Serious: Yes (Other)
  Sender: FDA-Public Use
  Company Number: PHHY2017NL156773

PATIENT
  Age: 73 Year
  Sex: Male

DRUGS (3)
  1. SIGNIFOR LAR [Suspect]
     Active Substance: PASIREOTIDE
     Indication: ACROMEGALY
     Dosage: UNK
     Route: 065
  2. LANREOTIDE [Concomitant]
     Active Substance: LANREOTIDE
     Indication: PRODUCT USED FOR UNKNOWN INDICATION
     Dosage: 120 MG, UNK
     Route: 058
     Dates: start: 20170404
  3. PEGVISOMANT [Concomitant]
     Active Substance: PEGVISOMANT
     Indication: PRODUCT USED FOR UNKNOWN INDICATION
     Dosage: 40 MG, UNK
     Route: 058
     Dates: start: 20170404

REACTIONS (6)
  - Haematochezia [Recovered/Resolved]
  - Hyperglycaemia [Recovered/Resolved]
  - Colitis ulcerative [Recovered/Resolved]
  - Diarrhoea [Recovering/Resolving]
  - Drug ineffective [Recovering/Resolving]
  - Headache [Recovering/Resolving]

NARRATIVE: CASE EVENT DATE: 20170203
